FAERS Safety Report 8395351-2 (Version None)
Quarter: 2012Q2

REPORT INFORMATION
  Report Type: 
  Country: None (occurrence: None)
  Receive Date: 20120530
  Receipt Date: 20120523
  Transmission Date: 20120825
  Serious: Yes (Hospitalization)
  Sender: FDA-Public Use
  Company Number: DE-PFIZER INC-2012125438

PATIENT
  Age: 80 Year
  Sex: Male
  Weight: 80 kg

DRUGS (1)
  1. SUNITINIB MALATE [Suspect]
     Indication: MALIGNANT MELANOMA
     Dosage: 37.5 UNK, DAILY
     Route: 048
     Dates: start: 20120502

REACTIONS (1)
  - HYPERTENSIVE CRISIS [None]
